FAERS Safety Report 4508754-0 (Version None)
Quarter: 2004Q4

REPORT INFORMATION
  Report Type: 
  Country: None (occurrence: None)
  Receive Date: 20041123
  Receipt Date: 20040712
  Transmission Date: 20050328
  Serious: No
  Sender: FDA-Public Use
  Company Number: US-GLAXOSMITHKLINE-A0518016A

PATIENT
  Age: 48 Year
  Sex: Female

DRUGS (7)
  1. WELLBUTRIN SR [Suspect]
     Indication: DRUG USE FOR UNKNOWN INDICATION
     Dosage: 100MG THREE TIMES PER DAY
     Route: 048
     Dates: start: 20040610
  2. LEVOXYL [Concomitant]
     Route: 048
  3. METFORMIN [Concomitant]
     Dosage: 500MG TWICE PER DAY
     Route: 048
  4. MULTI-VITAMIN [Concomitant]
  5. CALCIUM [Concomitant]
  6. GLUCOPHAGE [Concomitant]
     Dosage: 500MG TWICE PER DAY
     Route: 048
  7. GLUCOSAMINE + CHONDROITIN [Concomitant]
     Route: 048

REACTIONS (2)
  - MUSCLE CRAMP [None]
  - PAIN IN EXTREMITY [None]
